FAERS Safety Report 5733562-2 (Version None)
Quarter: 2008Q2

REPORT INFORMATION
  Report Type: 
  Country: None (occurrence: None)
  Receive Date: 20080509
  Receipt Date: 20080428
  Transmission Date: 20081010
  Serious: Yes (Other)
  Sender: FDA-Public Use
  Company Number: US-JNJFOC-20080500227

PATIENT
  Sex: Female
  Weight: 81.65 kg

DRUGS (6)
  1. IBUPROFEN TABLETS [Suspect]
     Indication: BACK PAIN
     Route: 048
  2. LISINOPRIL [Concomitant]
  3. ROBAXIN [Concomitant]
  4. PLAVIX [Concomitant]
  5. GABAPENTIN [Concomitant]
  6. IMIPRAMINE [Concomitant]

REACTIONS (2)
  - FIBROMYALGIA [None]
  - NAUSEA [None]
